FAERS Safety Report 5580531-1 (Version None)
Quarter: 2007Q4

REPORT INFORMATION
  Report Type: 
  Country: None (occurrence: None)
  Receive Date: 20071231
  Receipt Date: 20071231
  Transmission Date: 20080405
  Serious: Yes (Hospitalization)
  Sender: FDA-Public Use
  Company Number: None

PATIENT
  Age: 83 Year
  Sex: Male

DRUGS (1)
  1. ENOXAPARIN SODIUM [Suspect]
     Dosage: 70MG  BID  SQ
     Route: 058
     Dates: start: 20070419, end: 20070809

REACTIONS (3)
  - HAEMORRHAGE [None]
  - MELAENA [None]
  - PULMONARY MASS [None]
